FAERS Safety Report 6134991-8 (Version None)
Quarter: 2009Q1

REPORT INFORMATION
  Report Type: 
  Country: None (occurrence: None)
  Receive Date: 20090327
  Receipt Date: 20090314
  Transmission Date: 20090719
  Serious: Yes (Death)
  Sender: FDA-Public Use
  Company Number: KR-BAYER-200916464GPV

PATIENT
  Age: 40 Year
  Sex: Male

DRUGS (6)
  1. CAMPATH [Suspect]
     Indication: PERIPHERAL T-CELL LYMPHOMA UNSPECIFIED RECURRENT
     Dosage: TOTAL DAILY DOSE: 3 MG
     Route: 042
  2. CAMPATH [Suspect]
     Dosage: TOTAL DAILY DOSE: 10 MG
     Route: 042
  3. CAMPATH [Suspect]
     Dosage: TOTAL DAILY DOSE: 30 MG
     Route: 042
  4. CISPLATIN [Concomitant]
     Indication: PERIPHERAL T-CELL LYMPHOMA UNSPECIFIED RECURRENT
     Dosage: TOTAL DAILY DOSE: 100 MG/M2
     Route: 042
  5. CYTARABINE [Concomitant]
     Indication: PERIPHERAL T-CELL LYMPHOMA UNSPECIFIED RECURRENT
     Dosage: TOTAL DAILY DOSE: 4000 MG/M2
     Route: 042
  6. DEXAMETHASONE [Concomitant]
     Indication: PERIPHERAL T-CELL LYMPHOMA UNSPECIFIED RECURRENT
     Dosage: TOTAL DAILY DOSE: 40 MG
     Route: 042

REACTIONS (2)
  - HEPATIC FAILURE [None]
  - HEPATITIS B [None]
